FAERS Safety Report 11805226 (Version 1)
Quarter: 2015Q4

REPORT INFORMATION
  Report Type: Other
  Country: DE (occurrence: DE)
  Receive Date: 20151206
  Receipt Date: 20151206
  Transmission Date: 20160305
  Serious: Yes (Other)
  Sender: FDA-Public Use
  Company Number: DE-MYLANLABS-2015M1042179

PATIENT

DRUGS (8)
  1. NUVARING [Concomitant]
     Active Substance: ETHINYL ESTRADIOL\ETONOGESTREL
     Indication: CONTRACEPTION
     Dosage: 0.015 [MG/D ] / 0.12 [MG/D ]
     Route: 064
     Dates: start: 20140609, end: 20140723
  2. CYTOTEC [Concomitant]
     Active Substance: MISOPROSTOL
     Indication: LABOUR INDUCTION
     Dosage: UNK
     Route: 064
  3. CLOZAPIN [Suspect]
     Active Substance: CLOZAPINE
     Indication: SCHIZOPHRENIA, PARANOID TYPE
     Dosage: 350 [MG/D ]
     Route: 064
     Dates: start: 20140609, end: 20150321
  4. OMEGA-3 FATTY ACIDS [Concomitant]
     Active Substance: OMEGA-3 FATTY ACIDS
     Indication: SCHIZOPHRENIA, PARANOID TYPE
     Dosage: 1000 [MG/D ]
     Route: 064
     Dates: start: 20140609, end: 20140723
  5. SEROQUEL [Concomitant]
     Active Substance: QUETIAPINE FUMARATE
     Indication: SCHIZOPHRENIA, PARANOID TYPE
     Dosage: 1200 [MG/D MAX. ]
     Route: 064
     Dates: start: 20140609, end: 20140719
  6. ABILIFY [Concomitant]
     Active Substance: ARIPIPRAZOLE
     Indication: SCHIZOPHRENIA, PARANOID TYPE
     Dosage: 15 [MG/D ]
     Route: 064
  7. DIPIPERON [Suspect]
     Active Substance: PIPAMPERONE
     Indication: SCHIZOPHRENIA, PARANOID TYPE
     Dosage: 40 [MG/D ]
     Route: 064
     Dates: start: 20140609, end: 20150321
  8. FOLGAMMA [Concomitant]
     Indication: PROPHYLAXIS OF NEURAL TUBE DEFECT
     Dosage: 1.5 [MG/D ]
     Route: 064
     Dates: start: 20140609, end: 20140724

REACTIONS (5)
  - Nystagmus [Unknown]
  - Respiratory disorder neonatal [Recovered/Resolved]
  - Neonatal disorder [Recovered/Resolved]
  - Foetal exposure during pregnancy [Unknown]
  - Hypotonia neonatal [Recovered/Resolved]

NARRATIVE: CASE EVENT DATE: 20150321
